FAERS Safety Report 8064852-9 (Version None)
Quarter: 2012Q1

REPORT INFORMATION
  Report Type: 
  Country: None (occurrence: None)
  Receive Date: 20120124
  Receipt Date: 20120113
  Transmission Date: 20120608
  Serious: No
  Sender: FDA-Public Use
  Company Number: US-BIOGENIDEC-2011BI035088

PATIENT
  Age: 31 Year
  Sex: Female

DRUGS (1)
  1. TYSABRI [Suspect]
     Indication: MULTIPLE SCLEROSIS
     Route: 042
     Dates: start: 20110215, end: 20110810

REACTIONS (8)
  - DRUG INEFFECTIVE [None]
  - FATIGUE [None]
  - MULTIPLE SCLEROSIS RELAPSE [None]
  - DRUG SPECIFIC ANTIBODY PRESENT [None]
  - MUSCULAR WEAKNESS [None]
  - HYPOAESTHESIA [None]
  - DIPLOPIA [None]
  - GENERAL SYMPTOM [None]
